FAERS Safety Report 7334610-9 (Version None)
Quarter: 2011Q1

REPORT INFORMATION
  Report Type: 
  Country: None (occurrence: None)
  Receive Date: 20110307
  Receipt Date: 20110222
  Transmission Date: 20110831
  Serious: Yes (Hospitalization)
  Sender: FDA-Public Use
  Company Number: US-ELI_LILLY_AND_COMPANY-US201102006379

PATIENT
  Age: 12 Year
  Sex: Female

DRUGS (6)
  1. ZYPREXA ZYDIS [Suspect]
     Dosage: 30 MG, DAILY (1/D)
  2. ZYPREXA ZYDIS [Suspect]
     Dosage: 2.5 MG, AS NEEDED
  3. ZYPREXA ZYDIS [Suspect]
     Indication: AUTISM
     Dosage: 5 MG, 3/D
  4. ZYPREXA [Suspect]
     Dosage: 2.5 MG, AS NEEDED
  5. ZYPREXA [Suspect]
     Indication: AUTISM
     Dosage: 5 MG, 3/D
  6. ZYPREXA [Suspect]
     Dosage: 30 MG, DAILY (1/D)

REACTIONS (4)
  - OFF LABEL USE [None]
  - MEDICATION ERROR [None]
  - OVERDOSE [None]
  - AGGRESSION [None]
